FAERS Safety Report 16476886 (Version 2)
Quarter: 2020Q1

REPORT INFORMATION
  Report Type: Report from Study
  Country: US (occurrence: US)
  Receive Date: 20190626
  Receipt Date: 20200106
  Transmission Date: 20200409
  Serious: Yes (Other)
  Sender: FDA-Public Use
  Company Number: US-ROCHE-2341735

PATIENT
  Sex: Female
  Weight: 72.64 kg

DRUGS (6)
  1. MAGNESIUM [Concomitant]
     Active Substance: MAGNESIUM
  2. OCREVUS [Suspect]
     Active Substance: OCRELIZUMAB
     Indication: RELAPSING-REMITTING MULTIPLE SCLEROSIS
     Route: 042
     Dates: start: 2017
  3. COENZYME Q10 [Concomitant]
     Active Substance: UBIDECARENONE
  4. CALCIUM [Concomitant]
     Active Substance: CALCIUM
  5. KRILL OIL [Concomitant]
     Active Substance: DIETARY SUPPLEMENT\KRILL OIL
  6. B50 [Concomitant]

REACTIONS (1)
  - Urinary tract infection [Unknown]
